FAERS Safety Report 24682250 (Version 1)
Quarter: 2024Q4

REPORT INFORMATION
  Report Type: Spontaneous
  Country: US (occurrence: US)
  Receive Date: 20241130
  Receipt Date: 20241130
  Transmission Date: 20250115
  Serious: Yes (Other)
  Sender: AMGEN
  Company Number: US-AMGEN-USASP2024232489

PATIENT
  Age: 53 Year
  Sex: Male

DRUGS (4)
  1. PREDNISONE [Suspect]
     Active Substance: PREDNISONE
     Indication: Immunosuppression
     Dosage: UNK
     Route: 065
  2. THYMOGLOBULIN [Concomitant]
     Active Substance: LAPINE T-LYMPHOCYTE IMMUNE GLOBULIN
     Indication: Immunosuppression
  3. BELATACEPT [Concomitant]
     Active Substance: BELATACEPT
     Indication: Immunosuppression
  4. MYCOPHENOLATE SODIUM [Concomitant]
     Active Substance: MYCOPHENOLATE SODIUM
     Indication: Immunosuppression

REACTIONS (3)
  - Kidney transplant rejection [Unknown]
  - Kaposi^s sarcoma [Unknown]
  - Human herpes virus 8 test positive [Unknown]
